FAERS Safety Report 12444500 (Version 1)
Quarter: 2016Q2

REPORT INFORMATION
  Report Type: Spontaneous
  Country: US (occurrence: US)
  Receive Date: 20160607
  Receipt Date: 20160607
  Transmission Date: 20160815
  Serious: No
  Sender: FDA-Public Use
  Company Number: US-PERRIGO-15US010415

PATIENT
  Age: 60 Year
  Sex: Male
  Weight: 68.27 kg

DRUGS (2)
  1. MINOXIDIL. [Suspect]
     Active Substance: MINOXIDIL
     Indication: ALOPECIA
     Dosage: 1/2 CAPFUL, BID
     Route: 061
     Dates: start: 20150908, end: 20150929
  2. LUBRIDERM                          /01007601/ [Suspect]
     Active Substance: PARAFFIN
     Indication: DRY SKIN PROPHYLAXIS
     Dosage: UNK
     Route: 061
     Dates: start: 2015, end: 20150929

REACTIONS (4)
  - Pruritus [Recovering/Resolving]
  - Dermatitis [Recovering/Resolving]
  - Skin exfoliation [Recovering/Resolving]
  - Swelling face [Recovering/Resolving]

NARRATIVE: CASE EVENT DATE: 20150929
